FAERS Safety Report 5676110-8 (Version None)
Quarter: 2008Q1

REPORT INFORMATION
  Report Type: 
  Country: None (occurrence: None)
  Receive Date: 20080321
  Receipt Date: 20080312
  Transmission Date: 20080703
  Serious: Yes (Hospitalization)
  Sender: FDA-Public Use
  Company Number: NL-TEVA-168837ISR

PATIENT
  Sex: Male
  Weight: 70 kg

DRUGS (1)
  1. TETRACYCLINE [Suspect]
     Indication: ACNE
     Dates: start: 20080125, end: 20080208

REACTIONS (1)
  - NEPHRITIS INTERSTITIAL [None]
